FAERS Safety Report 16286414 (Version 1)
Quarter: 2019Q2

REPORT INFORMATION
  Report Type: Spontaneous
  Country: US (occurrence: US)
  Receive Date: 20190508
  Receipt Date: 20190508
  Transmission Date: 20190711
  Serious: Yes (Death, Other)
  Sender: FDA-Public Use
  Company Number: US-TAKEDA-2018TUS021739

PATIENT
  Age: 56 Year
  Sex: Female
  Weight: 76.2 kg

DRUGS (82)
  1. METFORMIN [Concomitant]
     Active Substance: METFORMIN HYDROCHLORIDE
     Dosage: UNK
  2. PROPRANOLOL [Concomitant]
     Active Substance: PROPRANOLOL HYDROCHLORIDE
     Dosage: 20 MILLIGRAM, QD
     Route: 048
     Dates: start: 200811, end: 201109
  3. NORVASC [Concomitant]
     Active Substance: AMLODIPINE BESYLATE
     Dosage: 5 MG, 1X/DAY
     Route: 048
  4. NORVASC [Concomitant]
     Active Substance: AMLODIPINE BESYLATE
     Dosage: 5 MG, 1X/DAY
     Route: 048
  5. FOLIC ACID. [Concomitant]
     Active Substance: FOLIC ACID
     Dosage: 800 UG, UNK
     Route: 048
     Dates: start: 201108
  6. LIDOCAINE. [Concomitant]
     Active Substance: LIDOCAINE
     Dosage: 1 %, UNK
     Dates: start: 20090825
  7. THEOPHYLLINE [Concomitant]
     Active Substance: THEOPHYLLINE ANHYDROUS
     Dosage: 100 MILLIGRAM, BID
     Route: 048
  8. PRILOSEC [Suspect]
     Active Substance: OMEPRAZOLE MAGNESIUM
     Indication: PRODUCT USED FOR UNKNOWN INDICATION
     Dosage: UNK
     Route: 048
     Dates: start: 1995, end: 20150424
  9. LEVOTHYROXINE. [Concomitant]
     Active Substance: LEVOTHYROXINE
     Dosage: 100 UG, UNK
     Route: 048
  10. LEVOTHYROXINE. [Concomitant]
     Active Substance: LEVOTHYROXINE
     Dosage: 100 UG, UNK
     Route: 048
  11. PROPYLTHIOURACIL. [Concomitant]
     Active Substance: PROPYLTHIOURACIL
     Dosage: 150 MILLIGRAM, QD
     Route: 048
     Dates: start: 200811, end: 201308
  12. LABETALOL [Concomitant]
     Active Substance: LABETALOL\LABETALOL HYDROCHLORIDE
     Dosage: 20 MILLIGRAM, QD
     Route: 042
     Dates: start: 200810, end: 201108
  13. KLOR-CON [Concomitant]
     Active Substance: POTASSIUM CHLORIDE
     Dosage: 40 MEQ, UNK
     Route: 048
     Dates: start: 201108, end: 201108
  14. POLYETHYLENE GLYCOL [Concomitant]
     Active Substance: POLYETHYLENE GLYCOLS
     Dosage: 17 GRAM, QD
     Route: 048
  15. TYLENOL 8HR [Concomitant]
     Active Substance: ACETAMINOPHEN
     Dosage: 650 MILLIGRAM, QD
     Dates: start: 20090823
  16. CAPTOPRIL. [Concomitant]
     Active Substance: CAPTOPRIL
     Dosage: 0.25 MILLIGRAM, TID
     Route: 048
  17. LORAZEPAM. [Concomitant]
     Active Substance: LORAZEPAM
     Dosage: UNK
  18. DEMADEX [Concomitant]
     Active Substance: TORSEMIDE
     Dosage: 100 MILLIGRAM, BID
     Route: 048
  19. PROTONIX [Suspect]
     Active Substance: PANTOPRAZOLE SODIUM
     Indication: GASTROINTESTINAL DISORDER
     Dosage: 40 MILLIGRAM, BID
     Route: 048
  20. NEXIUM 24HR [Suspect]
     Active Substance: ESOMEPRAZOLE MAGNESIUM
     Indication: GASTROINTESTINAL DISORDER
     Dosage: UNK
     Route: 048
     Dates: start: 2000, end: 20150427
  21. FLUDARA [Concomitant]
     Active Substance: FLUDARABINE PHOSPHATE
     Dosage: IN 100 ML SALINE
  22. HYDRALAZINE [Concomitant]
     Active Substance: HYDRALAZINE HYDROCHLORIDE
     Dosage: 50 MG, 3X/DAY
     Route: 048
  23. LEVEMIR [Concomitant]
     Active Substance: INSULIN DETEMIR
     Dosage: 15 IU, UNK
     Route: 058
  24. LEVEMIR [Concomitant]
     Active Substance: INSULIN DETEMIR
     Dosage: 15 IU, UNK
     Route: 058
  25. NOVOLOG [Concomitant]
     Active Substance: INSULIN ASPART
     Dosage: 5 MG, 1X/DAY
     Route: 048
  26. METOCLOPRAMIDE. [Concomitant]
     Active Substance: METOCLOPRAMIDE
     Dosage: 5 MILLIGRAM, TID
     Route: 042
     Dates: start: 200811, end: 200812
  27. LABETALOL [Concomitant]
     Active Substance: LABETALOL\LABETALOL HYDROCHLORIDE
     Dosage: 200 MILLIGRAM, QD
     Route: 048
     Dates: start: 201408
  28. HYDROCODONE BITARTRATE AND ACETAMINOPHEN [Concomitant]
     Active Substance: ACETAMINOPHEN\HYDROCODONE BITARTRATE
     Dosage: UNK
     Route: 048
     Dates: start: 201108, end: 201308
  29. ZOFRAN [Concomitant]
     Active Substance: ONDANSETRON HYDROCHLORIDE
     Dosage: UNK
  30. LEVALBUTEROL                       /01419301/ [Concomitant]
     Active Substance: LEVALBUTEROL
     Dosage: UNK
  31. LISINOPRIL. [Concomitant]
     Active Substance: LISINOPRIL
     Dosage: 20 MILLIGRAM, BID
     Route: 048
  32. CARVEDILOL. [Concomitant]
     Active Substance: CARVEDILOL
     Dosage: 12.5 MILLIGRAM, BID
     Route: 048
  33. SYNTHROID [Concomitant]
     Active Substance: LEVOTHYROXINE SODIUM
     Dosage: 20 IU, UNK
     Route: 058
  34. OXYGEN. [Concomitant]
     Active Substance: OXYGEN
     Dosage: 300 MG, 2X/DAY
  35. NEXIUM [Suspect]
     Active Substance: ESOMEPRAZOLE MAGNESIUM
     Indication: FLATULENCE
     Dosage: 40 MILLIGRAM, QD
     Route: 048
     Dates: start: 201108, end: 201308
  36. PALONOSETRON. [Concomitant]
     Active Substance: PALONOSETRON HYDROCHLORIDE
     Dosage: UNK
  37. CYTOXAN [Concomitant]
     Active Substance: CYCLOPHOSPHAMIDE
     Dosage: UNK
  38. TUMS [Concomitant]
     Active Substance: CALCIUM CARBONATE
     Dosage: 500 MILLIGRAM, TID
  39. HYDRALAZINE [Concomitant]
     Active Substance: HYDRALAZINE HYDROCHLORIDE
     Dosage: 50 MG, 3X/DAY
     Route: 048
  40. FUROSEMIDE. [Concomitant]
     Active Substance: FUROSEMIDE
     Dosage: 40 MG, 2X/DAY
     Route: 048
  41. VALSARTAN. [Concomitant]
     Active Substance: VALSARTAN
     Dosage: 80 MILLIGRAM, QD
     Route: 048
     Dates: start: 200810, end: 201108
  42. PROPYLTHIOURACIL. [Concomitant]
     Active Substance: PROPYLTHIOURACIL
     Dosage: 150 MILLIGRAM, QD
     Route: 048
     Dates: start: 201108, end: 201308
  43. CLONIDINE. [Concomitant]
     Active Substance: CLONIDINE
     Dosage: 0.1 MILLIGRAM, QD
     Route: 048
  44. ACYCLOVIR                          /00587301/ [Concomitant]
     Active Substance: ACYCLOVIR
     Dosage: 300 MILLIGRAM, BID
  45. PREVACID [Suspect]
     Active Substance: LANSOPRAZOLE
     Indication: PRODUCT USED FOR UNKNOWN INDICATION
     Dosage: UNK
     Route: 048
     Dates: start: 1995, end: 20150424
  46. RITUXAN [Concomitant]
     Active Substance: RITUXIMAB
     Dosage: UNK
  47. TORSEMIDE. [Concomitant]
     Active Substance: TORSEMIDE
     Dosage: 160 MILLIGRAM, QD
     Route: 048
  48. OXYGEN. [Concomitant]
     Active Substance: OXYGEN
     Dosage: 300 MG, 2X/DAY
  49. NEXIUM [Suspect]
     Active Substance: ESOMEPRAZOLE MAGNESIUM
     Dosage: UNK
     Route: 048
     Dates: start: 1995, end: 20150424
  50. KYTRIL [Concomitant]
     Active Substance: GRANISETRON HYDROCHLORIDE
     Dosage: 1 MG IN 50 ML SALINE
  51. DIPHENHYDRAMINE. [Concomitant]
     Active Substance: DIPHENHYDRAMINE
     Dosage: UNK
  52. ACETAMINOPHEN. [Concomitant]
     Active Substance: ACETAMINOPHEN
     Dosage: UNK
  53. PROPRANOLOL [Concomitant]
     Active Substance: PROPRANOLOL HYDROCHLORIDE
     Dosage: 80 MILLIGRAM, QD
     Route: 048
     Dates: start: 201108
  54. FUROSEMIDE. [Concomitant]
     Active Substance: FUROSEMIDE
     Dosage: 40 MG, 2X/DAY
     Route: 048
  55. ASPIRIN (E.C.) [Concomitant]
     Active Substance: ASPIRIN
     Dosage: 81 MILLIGRAM, QD
     Route: 048
     Dates: start: 200810
  56. METOPROLOL TARTRATE. [Concomitant]
     Active Substance: METOPROLOL TARTRATE
     Dosage: 81 MILLIGRAM, QD
     Route: 048
     Dates: start: 200810
  57. ONDANSETRON [Concomitant]
     Active Substance: ONDANSETRON
     Dosage: 4 MILLIGRAM, QD
     Route: 042
  58. ALPRAZOLAM. [Concomitant]
     Active Substance: ALPRAZOLAM
     Dosage: 0.25 MILLIGRAM, QD
     Route: 048
  59. FLEET ENEMA [Concomitant]
     Active Substance: SODIUM PHOSPHATE, DIBASIC\SODIUM PHOSPHATE, MONOBASIC
     Indication: CONSTIPATION
     Dosage: UNK
     Route: 048
     Dates: start: 20090823
  60. CALCIUM GLUCONATE. [Concomitant]
     Active Substance: CALCIUM GLUCONATE
     Dosage: UNK
     Route: 042
  61. VITAMIN D                          /00107901/ [Concomitant]
     Active Substance: ERGOCALCIFEROL
     Dosage: 50000 IU, UNK
     Route: 048
  62. VITAMIN D                          /00107901/ [Concomitant]
     Active Substance: ERGOCALCIFEROL
     Dosage: 50000 IU, UNK
     Route: 048
  63. NOVOLOG [Concomitant]
     Active Substance: INSULIN ASPART
     Dosage: 5 MG, 1X/DAY
     Route: 048
  64. FUROSEMIDE. [Concomitant]
     Active Substance: FUROSEMIDE
     Dosage: 40 MG/4 ML10MG/ML DAILY
     Route: 042
  65. KEPPRA [Concomitant]
     Active Substance: LEVETIRACETAM
     Dosage: 500 MILLIGRAM, BID
     Route: 048
     Dates: start: 200810, end: 200811
  66. METOCLOPRAMIDE. [Concomitant]
     Active Substance: METOCLOPRAMIDE
     Dosage: 5 MILLIGRAM, TID
     Route: 042
     Dates: start: 201108
  67. PROPYLTHIOURACIL. [Concomitant]
     Active Substance: PROPYLTHIOURACIL
     Dosage: 150 MILLIGRAM, QD
     Route: 048
     Dates: start: 200810, end: 200811
  68. ONDANSETRON [Concomitant]
     Active Substance: ONDANSETRON
     Indication: NAUSEA
     Dosage: 4 MILLIGRAM, QD
     Route: 042
  69. HYDROCORTISONE. [Concomitant]
     Active Substance: HYDROCORTISONE
     Dosage: 1 %, UNK
  70. MICRO-K [Concomitant]
     Active Substance: POTASSIUM CHLORIDE
     Dosage: 10 MEQ, UNK
     Route: 048
  71. METOLAZONE. [Concomitant]
     Active Substance: METOLAZONE
     Dosage: 10 MILLIGRAM, BID
     Route: 048
  72. PROZAC [Concomitant]
     Active Substance: FLUOXETINE HYDROCHLORIDE
     Indication: BIPOLAR I DISORDER
     Dosage: UNK
     Dates: start: 1993
  73. CIMETIDINE [Concomitant]
     Active Substance: CIMETIDINE
     Dosage: UNK
  74. FLUDARA [Concomitant]
     Active Substance: FLUDARABINE PHOSPHATE
     Dosage: IN 100 ML SALINE
  75. LANTUS [Concomitant]
     Active Substance: INSULIN GLARGINE
     Dosage: UNK
  76. FUROSEMIDE. [Concomitant]
     Active Substance: FUROSEMIDE
     Dosage: 40 MG/4 ML10MG/ML DAILY
     Route: 042
  77. VITAMIN B12 AAA [Concomitant]
     Dosage: 1000 UG, UNK
     Route: 048
     Dates: start: 201108
  78. GLUCAGON. [Concomitant]
     Active Substance: GLUCAGON
     Dosage: 1 MILLIGRAM, QD
     Route: 030
  79. GLUCAGON. [Concomitant]
     Active Substance: GLUCAGON
     Dosage: 1 MILLIGRAM, QD
     Route: 030
  80. ALBUTEROL HFA [Concomitant]
     Active Substance: ALBUTEROL SULFATE
     Dosage: 2.5 MG IN 0.5 ML
  81. RANITIDINE. [Concomitant]
     Active Substance: RANITIDINE
     Dosage: 150 MILLIGRAM, QD
     Route: 048
  82. ALLOPURINOL. [Concomitant]
     Active Substance: ALLOPURINOL
     Dosage: 300 MILLIGRAM, QD

REACTIONS (22)
  - Multiple organ dysfunction syndrome [Not Recovered/Not Resolved]
  - Cerebrovascular accident [Unknown]
  - Ventricular hypertrophy [Fatal]
  - Chronic kidney disease [Unknown]
  - Nephropathy [Not Recovered/Not Resolved]
  - Depression [Unknown]
  - Death [Fatal]
  - Tubulointerstitial nephritis [Unknown]
  - Cystitis interstitial [Unknown]
  - Condition aggravated [Unknown]
  - Acute kidney injury [Fatal]
  - Cardio-respiratory arrest [Fatal]
  - Cardiovascular disorder [Not Recovered/Not Resolved]
  - End stage renal disease [Fatal]
  - Dementia [Not Recovered/Not Resolved]
  - Renal failure [Not Recovered/Not Resolved]
  - Thrombosis [Unknown]
  - Hypertensive cardiomegaly [Fatal]
  - Seizure [Fatal]
  - Acute coronary syndrome [Unknown]
  - Stroke in evolution [Unknown]
  - Cardiac failure congestive [Unknown]

NARRATIVE: CASE EVENT DATE: 20090810
